FAERS Safety Report 4954348-2 (Version None)
Quarter: 2006Q1

REPORT INFORMATION
  Report Type: 
  Country: None (occurrence: None)
  Receive Date: 20060321
  Receipt Date: 20060316
  Transmission Date: 20060701
  Serious: No
  Sender: FDA-Public Use
  Company Number: C06-034

PATIENT
  Age: 81 Year
  Sex: Female

DRUGS (1)
  1. QUINAPRIL [Suspect]
     Dosage: BY MOUTH  FOR SEVERAL YEARS

REACTIONS (3)
  - BLOOD PRESSURE INCREASED [None]
  - MEDICATION RESIDUE [None]
  - PHARMACEUTICAL PRODUCT COMPLAINT [None]
